FAERS Safety Report 13616494 (Version 2)
Quarter: 2018Q3

REPORT INFORMATION
  Report Type: Spontaneous
  Country: US (occurrence: US)
  Receive Date: 20170606
  Receipt Date: 20180927
  Transmission Date: 20181010
  Serious: Yes (Disabling, Other)
  Sender: FDA-Public Use
  Company Number: US-SA-2016SA084109

PATIENT
  Age: 47 Year
  Sex: Female

DRUGS (3)
  1. LANTUS [Suspect]
     Active Substance: INSULIN GLARGINE
     Dosage: 26 DF,QD
     Route: 065
  2. LANTUS [Suspect]
     Active Substance: INSULIN GLARGINE
     Indication: TYPE 2 DIABETES MELLITUS
     Dosage: 17 DF,QD
     Route: 065
     Dates: start: 201503
  3. METFORMIN HYDROCHLORIDE. [Suspect]
     Active Substance: METFORMIN HYDROCHLORIDE
     Dosage: UNK UNK, UNK

REACTIONS (7)
  - Diabetic neuropathy [Unknown]
  - Visual impairment [Unknown]
  - Hypersensitivity [Unknown]
  - Retinopathy [Unknown]
  - Diabetes mellitus [Unknown]
  - Condition aggravated [Unknown]
  - Product packaging issue [Unknown]

NARRATIVE: CASE EVENT DATE: 201608
